FAERS Safety Report 5346297-5 (Version None)
Quarter: 2007Q2

REPORT INFORMATION
  Report Type: 
  Country: None (occurrence: None)
  Receive Date: 20070605
  Receipt Date: 20070530
  Transmission Date: 20071010
  Serious: Yes (Hospitalization)
  Sender: FDA-Public Use
  Company Number: CN-GENENTECH-242279

PATIENT
  Age: 71 Year
  Sex: Male

DRUGS (5)
  1. MABTHERA [Suspect]
     Indication: LYMPHOMA
     Route: 041
     Dates: start: 20070501
  2. CYCLOPHOSPHAMIDE [Concomitant]
     Indication: LYMPHOMA
  3. DOXORUBICIN HCL [Concomitant]
     Indication: LYMPHOMA
  4. VINCRISTINE [Concomitant]
     Indication: LYMPHOMA
  5. PREDNISONE TAB [Concomitant]
     Indication: LYMPHOMA

REACTIONS (1)
  - PULMONARY FIBROSIS [None]
